FAERS Safety Report 7047292-0 (Version None)
Quarter: 2010Q4

REPORT INFORMATION
  Report Type: 
  Country: None (occurrence: None)
  Receive Date: 20101015
  Receipt Date: 20101001
  Transmission Date: 20110411
  Serious: Yes (Disabling, Other)
  Sender: FDA-Public Use
  Company Number: PHHY2010ZA60442

PATIENT
  Sex: Female

DRUGS (3)
  1. TAREG [Suspect]
     Dosage: 80 MG
     Dates: start: 20100201
  2. CRESTOR [Concomitant]
     Indication: BLOOD CHOLESTEROL INCREASED
     Dosage: 10 MG DAILY
  3. ATORVASTATIN [Concomitant]
     Dosage: UNK

REACTIONS (3)
  - ANXIETY [None]
  - BURNING SENSATION [None]
  - GLOSSODYNIA [None]
